FAERS Safety Report 5029372-4 (Version None)
Quarter: 2006Q2

REPORT INFORMATION
  Report Type: 
  Country: None (occurrence: None)
  Receive Date: 20060614
  Receipt Date: 20060602
  Transmission Date: 20061013
  Serious: Yes (Hospitalization)
  Sender: FDA-Public Use
  Company Number: 2006VX000613

PATIENT
  Age: 55 Year
  Sex: Female

DRUGS (2)
  1. INTERFERON - ALFACON-1 [Suspect]
     Indication: HEPATITIS C
     Dosage: 15 UG;QD;SC
     Route: 058
     Dates: start: 20060515, end: 20060526
  2. RIBAVIRIN [Suspect]
     Indication: HEPATITIS C
     Dates: start: 20060515, end: 20060526

REACTIONS (2)
  - BLOOD CREATININE INCREASED [None]
  - INFLUENZA LIKE ILLNESS [None]
